FAERS Safety Report 14580956 (Version 1)
Quarter: 2018Q1

REPORT INFORMATION
  Report Type: Spontaneous
  Country: US (occurrence: US)
  Receive Date: 20180228
  Receipt Date: 20180228
  Transmission Date: 20180509
  Serious: No
  Sender: FDA-Public Use
  Company Number: US-ACCORD-063042

PATIENT
  Age: 72 Year
  Sex: Female
  Weight: 58.97 kg

DRUGS (1)
  1. PRAVASTATIN ACCORD [Suspect]
     Active Substance: PRAVASTATIN
     Indication: BLOOD CHOLESTEROL INCREASED
     Dosage: STRENGTH: 20 MG
     Route: 048

REACTIONS (1)
  - Rash [Unknown]
